FAERS Safety Report 8494411 (Version 4)
Quarter: 2017Q1

REPORT INFORMATION
  Report Type: Report from Study
  Country: CA (occurrence: CA)
  Receive Date: 20120404
  Receipt Date: 20170116
  Transmission Date: 20170429
  Serious: Yes (Hospitalization)
  Sender: FDA-Public Use
  Company Number: CA-AMGEN-CANCT2012021179

PATIENT
  Age: 56 Year
  Sex: Male

DRUGS (5)
  1. VITAMIN D [Concomitant]
     Active Substance: CHOLECALCIFEROL
     Dosage: UNK UNK, BID
     Route: 048
     Dates: start: 20100723
  2. HYDROMORPHONE [Concomitant]
     Active Substance: HYDROMORPHONE
     Dosage: UNK
     Route: 048
     Dates: start: 20100519
  3. CALCIUM [Concomitant]
     Active Substance: CALCIUM
     Dosage: 500 MG, BID
     Route: 048
     Dates: start: 20100723
  4. TYLENOL [Concomitant]
     Active Substance: ACETAMINOPHEN
     Dosage: 500 MG, AS NECESSARY
     Route: 048
     Dates: start: 20100725
  5. DENOSUMAB [Suspect]
     Active Substance: DENOSUMAB
     Indication: BONE GIANT CELL TUMOUR
     Dosage: 120 MG, Q4WK
     Route: 058
     Dates: start: 20100723, end: 20120402

REACTIONS (1)
  - Pain in extremity [Recovered/Resolved]

NARRATIVE: CASE EVENT DATE: 20120307
